FAERS Safety Report 6691416-1 (Version None)
Quarter: 2010Q2

REPORT INFORMATION
  Report Type: 
  Country: None (occurrence: None)
  Receive Date: 20100416
  Receipt Date: 20100413
  Transmission Date: 20101027
  Serious: Yes (Death, Hospitalization)
  Sender: FDA-Public Use
  Company Number: 2010SP021547

PATIENT
  Age: 45 Year
  Sex: Female

DRUGS (3)
  1. CELESTONE [Suspect]
     Indication: HEADACHE
  2. VOLTAREN [Suspect]
     Indication: HEADACHE
  3. RAYZON (PARECOXIB SODIUM) [Suspect]
     Indication: HEADACHE

REACTIONS (2)
  - CONVULSION [None]
  - MULTI-ORGAN FAILURE [None]
